FAERS Safety Report 18968777 (Version 1)
Quarter: 2021Q1

REPORT INFORMATION
  Report Type: Spontaneous
  Country: AU (occurrence: AU)
  Receive Date: 20210304
  Receipt Date: 20210304
  Transmission Date: 20210420
  Serious: Yes (Hospitalization)
  Sender: FDA-Public Use
  Company Number: AU-MYLANLABS-2021M1013628

PATIENT
  Age: 38 Year
  Sex: Female

DRUGS (2)
  1. VALPROIC ACID. [Suspect]
     Active Substance: VALPROIC ACID
     Indication: BIPOLAR DISORDER
     Dosage: UNK
     Route: 065
  2. QUETIAPINE. [Concomitant]
     Active Substance: QUETIAPINE
     Indication: BIPOLAR DISORDER
     Dosage: UNK
     Route: 065

REACTIONS (7)
  - Condition aggravated [Recovered/Resolved]
  - Lipid metabolism disorder [Recovered/Resolved]
  - Immune-mediated myositis [Recovered/Resolved]
  - Lactic acidosis [Recovered/Resolved]
  - Metabolic disorder [Recovered/Resolved]
  - Cardio-respiratory arrest [Recovered/Resolved]
  - Off label use [Unknown]
